FAERS Safety Report 6844716-6 (Version None)
Quarter: 2010Q3

REPORT INFORMATION
  Report Type: 
  Country: None (occurrence: None)
  Receive Date: 20100715
  Receipt Date: 20100707
  Transmission Date: 20110219
  Serious: Yes (Disabling)
  Sender: FDA-Public Use
  Company Number: GB-BAXTER-2010BH018105

PATIENT
  Age: 75 Year
  Sex: Male

DRUGS (11)
  1. SEVOFLURANE [Suspect]
     Indication: ANAPHYLACTIC REACTION
     Route: 055
  2. FLUCLOXACILLIN [Suspect]
     Indication: PROPHYLAXIS
     Route: 042
     Dates: start: 20091215, end: 20091216
  3. DEXAMETHASONE [Concomitant]
     Indication: ANAESTHESIA
     Route: 065
  4. ENOXAPARIN SODIUM [Concomitant]
     Indication: ANAESTHESIA
     Route: 065
  5. FENTANYL [Concomitant]
     Indication: ANAESTHESIA
     Route: 065
  6. GENTAMICIN [Concomitant]
     Indication: ANAESTHESIA
     Route: 065
  7. MIDAZOLAM HCL [Concomitant]
     Indication: ANAESTHESIA
     Route: 065
  8. MORPHINE [Concomitant]
     Indication: ANAESTHESIA
     Route: 065
  9. ONDANSETRON [Concomitant]
     Indication: ANAESTHESIA
     Route: 065
  10. ACETAMINOPHEN [Concomitant]
     Indication: ANAESTHESIA
     Route: 042
  11. PROPOFOL [Concomitant]
     Indication: ANAESTHESIA
     Route: 065

REACTIONS (3)
  - ALANINE AMINOTRANSFERASE INCREASED [None]
  - HEPATITIS [None]
  - INTERNATIONAL NORMALISED RATIO INCREASED [None]
